FAERS Safety Report 7168181-7 (Version None)
Quarter: 2010Q4

REPORT INFORMATION
  Report Type: 
  Country: None (occurrence: None)
  Receive Date: 20101216
  Receipt Date: 20101215
  Transmission Date: 20110411
  Serious: Yes (Other)
  Sender: FDA-Public Use
  Company Number: US-PFIZER INC-2010165123

PATIENT
  Sex: Female
  Weight: 73 kg

DRUGS (3)
  1. PROTONIX [Suspect]
     Indication: DYSPEPSIA
     Dosage: UNK
     Route: 048
     Dates: end: 20100101
  2. PROTONIX [Suspect]
     Indication: GASTRIC DISORDER
  3. TRETINOIN [Concomitant]
     Indication: ACNE
     Dosage: UNK
     Route: 061

REACTIONS (3)
  - CATARACT [None]
  - NIGHT BLINDNESS [None]
  - VISION BLURRED [None]
